FAERS Safety Report 16174949 (Version 1)
Quarter: 2019Q2

REPORT INFORMATION
  Report Type: Spontaneous
  Country: BR (occurrence: BR)
  Receive Date: 20190409
  Receipt Date: 20190409
  Transmission Date: 20190711
  Serious: Yes (Other)
  Sender: FDA-Public Use
  Company Number: BR-BIOMARINAP-BR-2019-122864

PATIENT
  Age: 3 Year
  Sex: Male
  Weight: 14.2 kg

DRUGS (1)
  1. ALDURAZYME [Suspect]
     Active Substance: LARONIDASE
     Indication: MUCOPOLYSACCHARIDOSIS I
     Dosage: UNK, QW
     Route: 041
     Dates: start: 20160804

REACTIONS (5)
  - Vascular device user [Recovering/Resolving]
  - Poor venous access [Recovering/Resolving]
  - Infusion site injury [Recovered/Resolved]
  - Blood cholesterol increased [Recovering/Resolving]
  - Vein rupture [Recovering/Resolving]

NARRATIVE: CASE EVENT DATE: 20170104
